FAERS Safety Report 9889400 (Version 1)
Quarter: 2014Q1

REPORT INFORMATION
  Report Type: Report from Study
  Country: US (occurrence: US)
  Receive Date: 20140211
  Receipt Date: 20140211
  Transmission Date: 20141002
  Serious: Yes (Death, Hospitalization)
  Sender: FDA-Public Use
  Company Number: US-ABBVIE-14P-163-1197924-00

PATIENT
  Sex: Male

DRUGS (6)
  1. HUMIRA [Suspect]
     Indication: PSORIATIC ARTHROPATHY
     Dates: start: 2008, end: 2010
  2. HUMIRA [Suspect]
     Dates: start: 2010
  3. VICODIN [Concomitant]
     Indication: PAIN
  4. VITAMIN D [Concomitant]
     Indication: PRODUCT USED FOR UNKNOWN INDICATION
  5. SEROQUEL [Concomitant]
     Indication: INSOMNIA
  6. CLONAZEPAM [Concomitant]
     Indication: INSOMNIA

REACTIONS (6)
  - Intracranial aneurysm [Fatal]
  - Migraine [Unknown]
  - Drug ineffective [Not Recovered/Not Resolved]
  - Pancreatitis chronic [Unknown]
  - Procedural complication [Unknown]
  - Abdominal pain [Unknown]
